FAERS Safety Report 17945953 (Version 1)
Quarter: 2020Q2

REPORT INFORMATION
  Report Type: Report from Study
  Country: FR (occurrence: FR)
  Receive Date: 20200625
  Receipt Date: 20200625
  Transmission Date: 20200714
  Serious: Yes (Life-Threatening)
  Sender: FDA-Public Use
  Company Number: FR-CELGENEUS-FRA-2014094829

PATIENT
  Age: 77 Year
  Sex: Male
  Weight: 64.6 kg

DRUGS (1)
  1. ABI-007 [Suspect]
     Active Substance: PACLITAXEL
     Indication: COLORECTAL CANCER METASTATIC
     Route: 041
     Dates: start: 20140915, end: 20140925

REACTIONS (1)
  - Neutropenia [Recovered/Resolved]

NARRATIVE: CASE EVENT DATE: 20140925
